FAERS Safety Report 5767603-3 (Version None)
Quarter: 2008Q2

REPORT INFORMATION
  Report Type: 
  Country: None (occurrence: None)
  Receive Date: 20080609
  Receipt Date: 20080527
  Transmission Date: 20081010
  Serious: Yes (Death)
  Sender: FDA-Public Use
  Company Number: 001128

PATIENT
  Age: 23 Year
  Sex: Female

DRUGS (2)
  1. BUSULFEX [Suspect]
     Indication: STEM CELL TRANSPLANT
  2. CYCLOPHOSPHAMIDE [Concomitant]

REACTIONS (6)
  - GRAFT VERSUS HOST DISEASE [None]
  - GUILLAIN-BARRE SYNDROME [None]
  - HAEMOLYTIC URAEMIC SYNDROME [None]
  - NERVOUS SYSTEM DISORDER [None]
  - OBLITERATIVE BRONCHIOLITIS [None]
  - RESPIRATORY FAILURE [None]
